FAERS Safety Report 12062548 (Version 1)
Quarter: 2016Q1

REPORT INFORMATION
  Report Type: Other
  Country: GB (occurrence: GB)
  Receive Date: 20160210
  Receipt Date: 20160210
  Transmission Date: 20160526
  Serious: Yes (Congenital Anomaly)
  Sender: FDA-Public Use
  Company Number: GB-MYLANLABS-2016M1004744

PATIENT

DRUGS (3)
  1. BUDESONIDE. [Concomitant]
     Active Substance: BUDESONIDE
     Dosage: UNK
  2. URSODEOXYCHOLIC ACID [Concomitant]
     Active Substance: URSODIOL
     Dosage: UNK
  3. TACROLIMUS. [Suspect]
     Active Substance: TACROLIMUS
     Indication: AUTOIMMUNE HEPATITIS
     Dosage: 5 MG, UNK
     Route: 064

REACTIONS (6)
  - Exomphalos [Not Recovered/Not Resolved]
  - Neural tube defect [Not Recovered/Not Resolved]
  - Iniencephaly [Not Recovered/Not Resolved]
  - Foetal exposure during pregnancy [Unknown]
  - Teratogenicity [Not Recovered/Not Resolved]
  - Spinal disorder [Not Recovered/Not Resolved]
